FAERS Safety Report 9275612 (Version 1)
Quarter: 2013Q2

REPORT INFORMATION
  Report Type: Spontaneous
  Country: DE (occurrence: DE)
  Receive Date: 20130507
  Receipt Date: 20130515
  Transmission Date: 20140414
  Serious: Yes (Other)
  Sender: FDA-Public Use
  Company Number: DE-TEVA-401839GER

PATIENT
  Sex: Male

DRUGS (2)
  1. BICALUTAMID TEVA 150 MG FILMTABLETTEN [Suspect]
     Route: 048
     Dates: start: 201301
  2. CLOPIDOGREL [Interacting]

REACTIONS (2)
  - Cerebrovascular accident [Recovered/Resolved]
  - Drug interaction [Recovered/Resolved]
